FAERS Safety Report 5377551-9 (Version None)
Quarter: 2007Q3

REPORT INFORMATION
  Report Type: 
  Country: None (occurrence: None)
  Receive Date: 20070703
  Receipt Date: 20070620
  Transmission Date: 20080115
  Serious: Yes (Other)
  Sender: FDA-Public Use
  Company Number: NO-AMGEN-UK230827

PATIENT
  Sex: Female

DRUGS (10)
  1. NEULASTA [Suspect]
     Indication: CHEMOTHERAPY
  2. ZOFRAN [Concomitant]
  3. PARACETAMOL [Concomitant]
  4. FUROSEMIDE [Concomitant]
  5. PREGABALIN [Concomitant]
  6. ALLOPURINOL [Concomitant]
  7. METFORMIN HYDROCHLORIDE [Concomitant]
  8. FLUOROURACIL [Concomitant]
  9. ETOPOSIDE [Concomitant]
  10. CISPLATIN [Concomitant]

REACTIONS (3)
  - BLOOD PRESSURE DECREASED [None]
  - DIZZINESS [None]
  - LOSS OF CONSCIOUSNESS [None]
